FAERS Safety Report 11839763 (Version 1)
Quarter: 2015Q4

REPORT INFORMATION
  Report Type: Spontaneous
  Country: US (occurrence: None)
  Receive Date: 20151215
  Receipt Date: 20151215
  Transmission Date: 20160305
  Serious: No
  Sender: FDA-Public Use
  Company Number: None

PATIENT
  Age: 55 Year
  Sex: Male

DRUGS (1)
  1. PLEGRIDY [Suspect]
     Active Substance: PEGINTERFERON BETA-1A
     Indication: GENERAL SYMPTOM
     Dates: start: 20151122

REACTIONS (2)
  - Somnolence [None]
  - Incorrect dose administered [None]

NARRATIVE: CASE EVENT DATE: 20151208
